FAERS Safety Report 4711580-0 (Version None)
Quarter: 2005Q3

REPORT INFORMATION
  Report Type: 
  Country: None (occurrence: None)
  Receive Date: 20050708
  Receipt Date: 20050708
  Transmission Date: 20060218
  Serious: No
  Sender: FDA-Public Use
  Company Number: None

PATIENT
  Age: 15 Year
  Sex: Female

DRUGS (1)
  1. MINOCYCLINE [Suspect]
     Indication: ACNE
     Dosage: 100MG DAILY
     Dates: start: 20030101, end: 20050627

REACTIONS (4)
  - ARTHRALGIA [None]
  - ARTHROPATHY [None]
  - INFLAMMATION [None]
  - PYREXIA [None]
